FAERS Safety Report 8976284 (Version 1)
Quarter: 2012Q4

REPORT INFORMATION
  Report Type: 
  Country: US (occurrence: US)
  Receive Date: 20121219
  Receipt Date: 20121219
  Transmission Date: 20130627
  Serious: No
  Sender: FDA-Public Use
  Company Number: US-AMGEN-USASP2012062172

PATIENT
  Age: 76 Year
  Sex: Female
  Weight: 68.48 kg

DRUGS (1)
  1. PROLIA [Suspect]
     Indication: OSTEOPOROSIS POSTMENOPAUSAL
     Dosage: UNK UNK, one time dose
     Route: 058
     Dates: start: 20100801

REACTIONS (5)
  - Vomiting projectile [Recovered/Resolved]
  - Toothache [Recovered/Resolved]
  - Device failure [Recovered/Resolved]
  - Tooth disorder [Unknown]
  - Arthropathy [Unknown]
